FAERS Safety Report 6110963-4 (Version None)
Quarter: 2009Q1

REPORT INFORMATION
  Report Type: 
  Country: None (occurrence: None)
  Receive Date: 20090311
  Receipt Date: 20090309
  Transmission Date: 20090719
  Serious: Yes (Other)
  Sender: FDA-Public Use
  Company Number: FR-BRISTOL-MYERS SQUIBB COMPANY-14505408

PATIENT
  Age: 35 Year
  Sex: Male

DRUGS (3)
  1. REYATAZ [Suspect]
     Dates: start: 20080501
  2. TRUVADA [Suspect]
     Dates: start: 20080501
  3. NORVIR [Suspect]
     Dates: start: 20080501

REACTIONS (1)
  - CYTOLYTIC HEPATITIS [None]
